FAERS Safety Report 11587877 (Version 4)
Quarter: 2015Q4

REPORT INFORMATION
  Report Type: Spontaneous
  Country: US (occurrence: US)
  Receive Date: 20151001
  Receipt Date: 20151022
  Transmission Date: 20160304
  Serious: Yes (Other)
  Sender: FDA-Public Use
  Company Number: US-AMGEN-USASP2015099481

PATIENT
  Age: 53 Year
  Sex: Female

DRUGS (1)
  1. ENBREL [Suspect]
     Active Substance: ETANERCEPT
     Indication: PSORIATIC ARTHROPATHY
     Dosage: UNK
     Route: 065
     Dates: start: 20150912

REACTIONS (8)
  - Injection site recall reaction [Unknown]
  - Injection site pruritus [Unknown]
  - Rectal haemorrhage [Unknown]
  - Amenorrhoea [Unknown]
  - Injection site rash [Unknown]
  - Acne [Unknown]
  - Sinus disorder [Unknown]
  - Urticaria [Unknown]

NARRATIVE: CASE EVENT DATE: 2015
